FAERS Safety Report 5981110-4 (Version None)
Quarter: 2008Q4

REPORT INFORMATION
  Report Type: 
  Country: None (occurrence: None)
  Receive Date: 20081202
  Receipt Date: 20081202
  Transmission Date: 20090506
  Serious: Yes (Life-Threatening)
  Sender: FDA-Public Use
  Company Number: None

PATIENT
  Age: 50 Year
  Sex: Female
  Weight: 83.9154 kg

DRUGS (1)
  1. AVELOX [Suspect]
     Indication: PREOPERATIVE CARE
     Dosage: IV BOLUS
     Route: 040
     Dates: start: 20031111, end: 20031111

REACTIONS (3)
  - HYPERSENSITIVITY [None]
  - LUNG DISORDER [None]
  - RESPIRATORY ARREST [None]
